FAERS Safety Report 6433847-0 (Version None)
Quarter: 2009Q4

REPORT INFORMATION
  Report Type: 
  Country: None (occurrence: None)
  Receive Date: 20091110
  Receipt Date: 20091030
  Transmission Date: 20100525
  Serious: Yes (Death)
  Sender: FDA-Public Use
  Company Number: JP-AMGEN-US367206

PATIENT
  Age: 56 Year
  Sex: Female

DRUGS (2)
  1. ENBREL [Suspect]
     Indication: RHEUMATOID ARTHRITIS
     Dosage: UNKNOWN
     Route: 058
  2. PREDNISOLONE [Concomitant]
     Dosage: TABLET DOSE FORM; DOSE AND FREQUENCY NOT SPECIFIED
     Route: 048

REACTIONS (1)
  - COLITIS ISCHAEMIC [None]
